FAERS Safety Report 25871887 (Version 1)
Quarter: 2025Q4

REPORT INFORMATION
  Report Type: Report from Study
  Country: US (occurrence: US)
  Receive Date: 20251001
  Receipt Date: 20251001
  Transmission Date: 20260118
  Serious: Yes (Other)
  Sender: ABBVIE
  Company Number: US-ABBVIE-6480705

PATIENT
  Sex: Female

DRUGS (1)
  1. RESTASIS [Suspect]
     Active Substance: CYCLOSPORINE
     Indication: Product used for unknown indication
     Dosage: 0.05 PERCENT EYE EMULSION, INSTILL ONE DROP IN EACH EYE TWICE A DAY.?ROA: OPHTHALMIC
     Route: 065

REACTIONS (1)
  - Blindness [Unknown]
